FAERS Safety Report 7102021-7 (Version None)
Quarter: 2010Q4

REPORT INFORMATION
  Report Type: 
  Country: None (occurrence: None)
  Receive Date: 20101115
  Receipt Date: 20101110
  Transmission Date: 20110411
  Serious: Yes (Death, Other)
  Sender: FDA-Public Use
  Company Number: FR-ROCHE-725533

PATIENT
  Sex: Female
  Weight: 99 kg

DRUGS (1)
  1. ROCEPHIN [Suspect]
     Indication: PERICARDITIS INFECTIVE
     Dosage: OVERDOSE
     Route: 042
     Dates: start: 20100817, end: 20100829

REACTIONS (2)
  - CONFUSIONAL STATE [None]
  - OVERDOSE [None]
